FAERS Safety Report 14403104 (Version 2)
Quarter: 2018Q1

REPORT INFORMATION
  Report Type: Report from Study
  Country: US (occurrence: US)
  Receive Date: 20180117
  Receipt Date: 20180126
  Transmission Date: 20180509
  Serious: Yes (Hospitalization, Other)
  Sender: FDA-Public Use
  Company Number: US-GILEAD-2018-0316030

PATIENT
  Age: 82 Year
  Sex: Male
  Weight: 70.68 kg

DRUGS (12)
  1. RANOLAZINE. [Suspect]
     Active Substance: RANOLAZINE
     Indication: ANGINA PECTORIS
     Dosage: 500 MG, UNK
     Route: 048
     Dates: start: 201603
  2. TAMSULOSIN [Concomitant]
     Active Substance: TAMSULOSIN
  3. LOSARTIN [Concomitant]
     Active Substance: LOSARTAN
  4. LEVOTHYROXINE. [Concomitant]
     Active Substance: LEVOTHYROXINE
  5. PANCREAZE                          /00150201/ [Concomitant]
  6. ATORVASTATIN [Concomitant]
     Active Substance: ATORVASTATIN
  7. COUMADINE [Concomitant]
     Active Substance: WARFARIN SODIUM
  8. INSULIN [Concomitant]
     Active Substance: INSULIN NOS
  9. BUMETANIDE. [Concomitant]
     Active Substance: BUMETANIDE
  10. PLAVIX [Concomitant]
     Active Substance: CLOPIDOGREL BISULFATE
  11. BISOPROLOL [Concomitant]
     Active Substance: BISOPROLOL
  12. PROSCAR [Concomitant]
     Active Substance: FINASTERIDE

REACTIONS (2)
  - Benign prostatic hyperplasia [Unknown]
  - Prostatic operation [Recovered/Resolved]

NARRATIVE: CASE EVENT DATE: 20170305
